FAERS Safety Report 8271789-9 (Version None)
Quarter: 2012Q2

REPORT INFORMATION
  Report Type: 
  Country: None (occurrence: None)
  Receive Date: 20120410
  Receipt Date: 20120409
  Transmission Date: 20120825
  Serious: Yes (Death)
  Sender: FDA-Public Use
  Company Number: US-INCYTE CORPORATION-2012IN000522

PATIENT
  Sex: Female

DRUGS (8)
  1. JAKAFI [Suspect]
     Indication: MYELOFIBROSIS
     Dosage: 15 MG, BID
     Route: 048
  2. GLUCOSAMINE/CHONDROITIN [Concomitant]
  3. WARFARIN SODIUM [Concomitant]
  4. VITAMIN D [Concomitant]
  5. JAKAFI [Suspect]
     Dosage: 15 MG, BID
     Route: 048
  6. ASCORBIC ACID [Concomitant]
  7. GARLIC [Concomitant]
  8. FELODIPINE [Concomitant]

REACTIONS (1)
  - DEATH [None]
